FAERS Safety Report 9151066 (Version 1)
Quarter: 2013Q1

REPORT INFORMATION
  Report Type: Spontaneous
  Country: US (occurrence: US)
  Receive Date: 20130308
  Receipt Date: 20130308
  Transmission Date: 20140127
  Serious: Yes (Hospitalization, Other)
  Sender: FDA-Public Use
  Company Number: US-ROCHE-CID000000002204950

PATIENT
  Age: 17 Year
  Sex: Female
  Weight: 47.67 kg

DRUGS (6)
  1. ACCUTANE [Suspect]
     Indication: PRODUCT USED FOR UNKNOWN INDICATION
     Route: 065
     Dates: start: 20000408, end: 20000812
  2. CLARITIN [Concomitant]
  3. SPECTAZOLE [Concomitant]
  4. CORTISONE [Concomitant]
  5. ZYRTEC [Concomitant]
  6. ZOVIRAX [Concomitant]

REACTIONS (9)
  - Colitis ulcerative [Unknown]
  - Emotional distress [Unknown]
  - Inflammatory bowel disease [Unknown]
  - Depression [Unknown]
  - Suicidal ideation [Unknown]
  - Polyp [Unknown]
  - Irritable bowel syndrome [Unknown]
  - Sinus congestion [Unknown]
  - Rash [Unknown]
